FAERS Safety Report 4374550-0 (Version None)
Quarter: 2004Q2

REPORT INFORMATION
  Report Type: 
  Country: None (occurrence: None)
  Receive Date: 20040609
  Receipt Date: 20040526
  Transmission Date: 20050107
  Serious: Yes (Life-Threatening, Disabling)
  Sender: FDA-Public Use
  Company Number: US-MERCK-0405USA01995

PATIENT
  Sex: Female

DRUGS (14)
  1. EXTRA STRENGTH TYLENOL [Concomitant]
     Route: 065
  2. VICODIN [Concomitant]
     Route: 065
  3. FOSAMAX [Suspect]
     Indication: OSTEOPOROSIS
     Route: 048
     Dates: start: 20040522, end: 20040522
  4. ASCORBIC ACID [Concomitant]
     Route: 065
  5. ASPIRIN [Concomitant]
     Route: 065
  6. BUSPAR [Concomitant]
     Route: 065
  7. FLORINEF [Concomitant]
     Route: 065
  8. INSULIN, ISOPHANE [Concomitant]
     Route: 065
  9. CENTRUM [Concomitant]
     Route: 065
  10. POTASSIUM (UNSPECIFIED) [Concomitant]
     Route: 065
  11. ALTACE [Concomitant]
     Route: 065
  12. VITAMIN B COMPLEX [Concomitant]
     Route: 065
  13. VITAMIN E [Concomitant]
     Route: 065
  14. AMBIEN [Concomitant]
     Route: 065

REACTIONS (4)
  - BLOOD GLUCOSE INCREASED [None]
  - HYPOGLYCAEMIA [None]
  - STOMACH DISCOMFORT [None]
  - VOMITING [None]
